FAERS Safety Report 6098294-2 (Version None)
Quarter: 2009Q1

REPORT INFORMATION
  Report Type: 
  Country: None (occurrence: None)
  Receive Date: 20090301
  Receipt Date: 20090218
  Transmission Date: 20090719
  Serious: Yes (Hospitalization, Other)
  Sender: FDA-Public Use
  Company Number: AU-ASTRAZENECA-2009AP01321

PATIENT
  Age: 0 Day
  Sex: Male
  Weight: 3.4 kg

DRUGS (4)
  1. SEROQUEL [Suspect]
     Indication: DEPRESSION
     Route: 015
  2. LITHIUM [Suspect]
     Indication: PSYCHOTIC DISORDER
     Route: 015
  3. FLUOXETINE [Suspect]
     Route: 015
  4. BLACKMORES PREGNANCY AND BREAST FEEDING FORMULA [Concomitant]
     Indication: PROPHYLAXIS
     Route: 015

REACTIONS (1)
  - DRUG WITHDRAWAL SYNDROME NEONATAL [None]
